FAERS Safety Report 7640308-X (Version None)
Quarter: 2011Q3

REPORT INFORMATION
  Report Type: 
  Country: None (occurrence: None)
  Receive Date: 20110728
  Receipt Date: 20110627
  Transmission Date: 20111222
  Serious: No
  Sender: FDA-Public Use
  Company Number: US-BAYER-2011-057881

PATIENT

DRUGS (3)
  1. ACETAMINOPHEN [Concomitant]
     Dosage: UNK
     Dates: start: 20110623
  2. ALEVE (CAPLET) [Suspect]
     Indication: HEADACHE
     Dosage: UNK
     Route: 048
     Dates: start: 20110623
  3. EXCEDRIN (MIGRAINE) [Concomitant]
     Dosage: UNK
     Dates: start: 20110623

REACTIONS (1)
  - MIGRAINE [None]
